FAERS Safety Report 23676470 (Version 2)
Quarter: 2024Q2

REPORT INFORMATION
  Report Type: Spontaneous
  Country: US (occurrence: US)
  Receive Date: 20240327
  Receipt Date: 20240611
  Transmission Date: 20240716
  Serious: Yes (Other)
  Sender: FDA-Public Use
  Company Number: US-TEVA-VS-3165163

PATIENT
  Sex: Female

DRUGS (3)
  1. CLONIDINE HYDROCHLORIDE [Suspect]
     Active Substance: CLONIDINE HYDROCHLORIDE
     Indication: Hypertension
     Dosage: 0.2 MG//24 HR
     Route: 062
  2. CLONIDINE HYDROCHLORIDE [Suspect]
     Active Substance: CLONIDINE HYDROCHLORIDE
     Indication: Hypertension
     Dosage: SUPPOSE TO TAKE 2 PILLS PER DAY 0.1 MG. PATIENT TAKES THEM IN QUARTERS AND HALVES.
     Route: 065
  3. DIOVAN [Concomitant]
     Active Substance: VALSARTAN
     Indication: Hypertension
     Dosage: PILL

REACTIONS (12)
  - Eye haemorrhage [Unknown]
  - Hypertension [Unknown]
  - Product adhesion issue [Unknown]
  - Headache [Unknown]
  - Device issue [Unknown]
  - Urinary tract infection [Unknown]
  - Peripheral swelling [Unknown]
  - Abdominal pain upper [Unknown]
  - Bone pain [Unknown]
  - Swelling face [Unknown]
  - Feeling abnormal [Unknown]
  - Intentional product use issue [Unknown]
